FAERS Safety Report 10142846 (Version 1)
Quarter: 2014Q2

REPORT INFORMATION
  Report Type: Spontaneous
  Country: JP (occurrence: JP)
  Receive Date: 20140430
  Receipt Date: 20140430
  Transmission Date: 20141212
  Serious: Yes (Other)
  Sender: FDA-Public Use
  Company Number: JP-ASTRAZENECA-2014SE29036

PATIENT
  Sex: 0

DRUGS (2)
  1. SEROQUEL [Suspect]
     Route: 048
  2. ALCOHOL [Interacting]
     Route: 065

REACTIONS (2)
  - Alcohol interaction [Unknown]
  - Road traffic accident [Unknown]
